FAERS Safety Report 26074677 (Version 2)
Quarter: 2025Q4

REPORT INFORMATION
  Report Type: Spontaneous
  Country: US (occurrence: US)
  Receive Date: 20251121
  Receipt Date: 20251127
  Transmission Date: 20260117
  Serious: Yes (Hospitalization)
  Sender: SAMSUNG BIOEPIS
  Company Number: US-SAMSUNG BIOEPIS-SB-2025-38376

PATIENT
  Age: 52 Year
  Sex: Male

DRUGS (2)
  1. HADLIMA [Suspect]
     Active Substance: ADALIMUMAB-BWWD
     Indication: Takayasu^s arteritis
     Dosage: 40 MG/0.4 ML;
     Route: 058
     Dates: start: 202411
  2. HADLIMA [Suspect]
     Active Substance: ADALIMUMAB-BWWD
     Dosage: 40 MG/0.4 ML;
     Route: 058

REACTIONS (8)
  - Aortic aneurysm [Recovered/Resolved]
  - Gallbladder disorder [Unknown]
  - Haemoglobin decreased [Unknown]
  - Injection site discomfort [Unknown]
  - Device issue [Unknown]
  - Incorrect dose administered [Unknown]
  - Wrong technique in product usage process [Unknown]
  - Product use in unapproved indication [Unknown]
